FAERS Safety Report 8969805 (Version 1)
Quarter: 2012Q4

REPORT INFORMATION
  Report Type: 
  Country: FR (occurrence: FR)
  Receive Date: 20121218
  Receipt Date: 20121218
  Transmission Date: 20130627
  Serious: Yes (Other)
  Sender: FDA-Public Use
  Company Number: FR-SANOFI-AVENTIS-2012SA088902

PATIENT
  Age: 60 Year
  Sex: Male

DRUGS (4)
  1. ARAVA [Suspect]
     Indication: RHEUMATOID ARTHRITIS
     Route: 048
     Dates: start: 200810, end: 201207
  2. ETANERCEPT [Suspect]
     Indication: RHEUMATOID ARTHRITIS
     Route: 058
     Dates: start: 201204
  3. HUMIRA [Suspect]
     Indication: RHEUMATOID ARTHRITIS
     Dosage: every 14 days.
     Route: 058
     Dates: start: 201112, end: 201204
  4. CORTANCYL [Concomitant]

REACTIONS (1)
  - Lung adenocarcinoma [Not Recovered/Not Resolved]
